FAERS Safety Report 10873781 (Version 2)
Quarter: 2020Q3

REPORT INFORMATION
  Report Type: Spontaneous
  Country: US (occurrence: US)
  Receive Date: 20150227
  Receipt Date: 20150806
  Transmission Date: 20201105
  Serious: Yes (Hospitalization)
  Sender: FDA-Public Use
  Company Number: US-MUNDIPHARMA DS AND PHARMACOVIGILANCE-USA-2015-0121293

PATIENT
  Age: 23 Year
  Sex: Female
  Weight: 45 kg

DRUGS (6)
  1. OXYCODONE HYDROCHLORIDE (SIMILAR TO NDA 22?272) [Suspect]
     Active Substance: OXYCODONE HYDROCHLORIDE
     Indication: PRODUCT USED FOR UNKNOWN INDICATION
     Dosage: UNKNOWN
     Route: 065
  2. MS CONTIN [Suspect]
     Active Substance: MORPHINE SULFATE
     Indication: PRODUCT USED FOR UNKNOWN INDICATION
     Dosage: UNKNOWN
     Route: 065
  3. CEDIRANIB. [Suspect]
     Active Substance: CEDIRANIB
     Indication: METASTASES TO LUNG
  4. MORPHINE SULFATE (SIMILAR TO NDA 19?516) [Suspect]
     Active Substance: MORPHINE SULFATE
     Indication: PRODUCT USED FOR UNKNOWN INDICATION
     Dosage: 30 MG ORALLY DAILY (CYCLE=28 DAYS)
     Route: 048
     Dates: start: 20141211
  5. CEDIRANIB. [Suspect]
     Active Substance: CEDIRANIB
     Indication: ALVEOLAR SOFT PART SARCOMA
     Dosage: 30 MG ORALLY DAILY (CYCLE=28 DAYS)
     Route: 048
     Dates: start: 20141211, end: 20141231
  6. CEDIRANIB. [Suspect]
     Active Substance: CEDIRANIB
     Indication: METASTASES TO PELVIS

REACTIONS (2)
  - Sinus bradycardia [Recovered/Resolved]
  - Fatigue [Recovered/Resolved]

NARRATIVE: CASE EVENT DATE: 20150101
